FAERS Safety Report 23194338 (Version 2)
Quarter: 2024Q1

REPORT INFORMATION
  Report Type: Spontaneous
  Country: US (occurrence: US)
  Receive Date: 20231117
  Receipt Date: 20240111
  Transmission Date: 20240410
  Serious: No
  Sender: FDA-Public Use
  Company Number: US-BRISTOL-MYERS SQUIBB COMPANY-2023-165727

PATIENT
  Age: 82 Year
  Sex: Male
  Weight: 107.05 kg

DRUGS (1)
  1. REVLIMID [Suspect]
     Active Substance: LENALIDOMIDE
     Indication: Plasma cell myeloma
     Route: 048
     Dates: start: 20231001

REACTIONS (6)
  - Diarrhoea [Unknown]
  - Lethargy [Unknown]
  - Decreased appetite [Unknown]
  - Acne [Unknown]
  - Erythema [Unknown]
  - Gout [Unknown]
